FAERS Safety Report 23363400 (Version 1)
Quarter: 2024Q1

REPORT INFORMATION
  Report Type: Spontaneous
  Country: GB (occurrence: GB)
  Receive Date: 20240103
  Receipt Date: 20240103
  Transmission Date: 20240410
  Serious: Yes (Other)
  Sender: FDA-Public Use
  Company Number: None

PATIENT
  Age: 25 Year
  Sex: Female
  Weight: 63 kg

DRUGS (4)
  1. FLUCONAZOLE [Suspect]
     Active Substance: FLUCONAZOLE
     Indication: Fungal infection
     Dosage: 150 MG
     Dates: start: 20231215
  2. FLUCONAZOLE [Suspect]
     Active Substance: FLUCONAZOLE
     Dosage: 50 MG
  3. BISOPROLOL [Concomitant]
     Active Substance: BISOPROLOL\BISOPROLOL FUMARATE
     Indication: Tachycardia
     Dosage: UNK
     Dates: start: 20220710
  4. OMEPRAZOLE [Concomitant]
     Active Substance: OMEPRAZOLE
     Indication: Hiatus hernia
     Dosage: UNK
     Dates: start: 20230610

REACTIONS (7)
  - Fatigue [Recovered/Resolved with Sequelae]
  - Illness [Recovering/Resolving]
  - Decreased appetite [Unknown]
  - Diarrhoea [Unknown]
  - Somnolence [Unknown]
  - Tearfulness [Unknown]
  - Malaise [Unknown]

NARRATIVE: CASE EVENT DATE: 20231218
